FAERS Safety Report 23316135 (Version 1)
Quarter: 2023Q4

REPORT INFORMATION
  Report Type: Report from Study
  Country: US (occurrence: US)
  Receive Date: 20231219
  Receipt Date: 20231219
  Transmission Date: 20240110
  Serious: Yes (Other)
  Sender: FDA-Public Use
  Company Number: US-GILEAD-2023-0655168

PATIENT
  Age: 64 Year
  Sex: Female

DRUGS (1)
  1. AZTREONAM LYSINE [Suspect]
     Active Substance: AZTREONAM LYSINE
     Indication: Bronchiectasis
     Dosage: 1 DOSAGE FORM, TID (1 VIAL (1 ML) VIA ALTERA NEBULIZER, CYCLING 28 DAYS FOLLOWED BY 28 DAYS OFF)
     Route: 055

REACTIONS (2)
  - Pseudomonas infection [Unknown]
  - Off label use [Not Recovered/Not Resolved]

NARRATIVE: CASE EVENT DATE: 20231211
